FAERS Safety Report 13135296 (Version 1)
Quarter: 2017Q1

REPORT INFORMATION
  Report Type: Report from Study
  Country: US (occurrence: US)
  Receive Date: 20170120
  Receipt Date: 20170120
  Transmission Date: 20170428
  Serious: Yes (Other)
  Sender: FDA-Public Use
  Company Number: US-AMGEN-USASL2017008460

PATIENT
  Age: 33 Year
  Sex: Male

DRUGS (1)
  1. PROLIA [Suspect]
     Active Substance: DENOSUMAB
     Indication: OSTEOPOROSIS
     Dosage: UNK UNK, UNK
     Route: 065
     Dates: start: 201608

REACTIONS (11)
  - Urinary tract disorder [Not Recovered/Not Resolved]
  - Disability [Unknown]
  - Hip deformity [Unknown]
  - Weight increased [Unknown]
  - Abdominal discomfort [Unknown]
  - Abdominal pain [Not Recovered/Not Resolved]
  - Fatigue [Unknown]
  - Asthenia [Unknown]
  - Pollakiuria [Not Recovered/Not Resolved]
  - Aphasia [Unknown]
  - Insomnia [Unknown]

NARRATIVE: CASE EVENT DATE: 201608
